FAERS Safety Report 17224890 (Version 2)
Quarter: 2020Q1

REPORT INFORMATION
  Report Type: Spontaneous
  Country: IE (occurrence: IE)
  Receive Date: 20200102
  Receipt Date: 20200113
  Transmission Date: 20200409
  Serious: Yes (Other)
  Sender: FDA-Public Use
  Company Number: IE-BAXTER-2019BAX026898

PATIENT
  Age: 35 Year
  Sex: Male

DRUGS (3)
  1. METHOTREXATE. [Suspect]
     Active Substance: METHOTREXATE
     Indication: OSTEOSARCOMA
     Dosage: PERIOPERATIVE MAP CHEMOTHERAPY
     Route: 065
  2. CISPLATIN. [Suspect]
     Active Substance: CISPLATIN
     Indication: OSTEOSARCOMA
     Dosage: PERIOPERATIVE MAP CHEMOTHERAPY
     Route: 065
  3. DOXIL [Suspect]
     Active Substance: DOXORUBICIN HYDROCHLORIDE
     Indication: OSTEOSARCOMA
     Dosage: PERIOPERATIVE MAP CHEMOTHERAPY
     Route: 065

REACTIONS (2)
  - Adenocarcinoma of appendix [Recovered/Resolved]
  - Second primary malignancy [Recovered/Resolved]
